FAERS Safety Report 8819198 (Version 1)
Quarter: 2012Q4

REPORT INFORMATION
  Report Type: 
  Country: US (occurrence: US)
  Receive Date: 20121001
  Receipt Date: 20121001
  Transmission Date: 20130627
  Serious: No
  Sender: FDA-Public Use
  Company Number: US-PFIZER INC-2012240454

PATIENT
  Age: 71 Year
  Sex: Female
  Weight: 45.35 kg

DRUGS (5)
  1. PROCARDIA XL [Suspect]
     Indication: HYPERTENSION
     Dosage: 90 mg, daily
     Route: 048
  2. NORVASC [Suspect]
     Indication: HYPERTENSION
     Dosage: 10 mg, daily
     Route: 048
  3. METOPROLOL [Concomitant]
     Dosage: 100 mg, 2x/day
     Route: 048
  4. LISINOPRIL [Concomitant]
     Dosage: 20 mg, 2x/day
     Route: 048
  5. DILANTIN [Concomitant]
     Indication: INTRACRANIAL ANEURYSM
     Dosage: 200 mg, 2x/day
     Route: 048

REACTIONS (1)
  - Blood cholesterol increased [Unknown]
